FAERS Safety Report 8845821 (Version 1)
Quarter: 2012Q4

REPORT INFORMATION
  Report Type: 
  Country: GB (occurrence: GB)
  Receive Date: 20121017
  Receipt Date: 20121017
  Transmission Date: 20130627
  Serious: Yes (Disabling, Other)
  Sender: FDA-Public Use
  Company Number: GB-ABBOTT-12P-167-0994329-00

PATIENT
  Age: 42 Year
  Sex: Male
  Weight: 105 kg

DRUGS (3)
  1. HUMIRA [Suspect]
     Indication: ANKYLOSING SPONDYLITIS
     Dates: start: 20120218, end: 20120529
  2. SULPHASALAZINE [Concomitant]
     Indication: ANKYLOSING SPONDYLITIS
     Dosage: Long term
  3. NABUMETONE [Concomitant]
     Indication: ANKYLOSING SPONDYLITIS
     Dosage: Long term

REACTIONS (1)
  - Colitis [Recovered/Resolved]
